FAERS Safety Report 20515664 (Version 2)
Quarter: 2022Q1

REPORT INFORMATION
  Report Type: Other
  Country: ES (occurrence: ES)
  Receive Date: 20220224
  Receipt Date: 20220310
  Transmission Date: 20220424
  Serious: Yes (Other)
  Sender: FDA-Public Use
  Company Number: ES-BoehringerIngelheim-2022-BI-154839

PATIENT

DRUGS (1)
  1. ALTEPLASE [Suspect]
     Active Substance: ALTEPLASE
     Indication: Ischaemic stroke
     Dosage: (MAXIMUM DOSE, 22.5 MG) INFUSED OVER 15 TO 30 MINUTES
     Route: 013

REACTIONS (1)
  - Nervous system disorder [Unknown]
